FAERS Safety Report 6850804-0 (Version None)
Quarter: 2010Q3

REPORT INFORMATION
  Report Type: 
  Country: None (occurrence: None)
  Receive Date: 20100716
  Receipt Date: 20071023
  Transmission Date: 20110219
  Serious: Yes (Other)
  Sender: FDA-Public Use
  Company Number: US-PFIZER INC-2007090282

PATIENT
  Sex: Male
  Weight: 93 kg

DRUGS (2)
  1. CHANTIX [Suspect]
     Indication: SMOKING CESSATION THERAPY
     Dates: start: 20071001
  2. ALL OTHER THERAPEUTIC PRODUCTS [Concomitant]
     Indication: PROSTATOMEGALY

REACTIONS (2)
  - DIABETES MELLITUS [None]
  - VISION BLURRED [None]
